FAERS Safety Report 8599700-1 (Version None)
Quarter: 2012Q3

REPORT INFORMATION
  Report Type: 
  Country: None (occurrence: None)
  Receive Date: 20120816
  Receipt Date: 20120816
  Transmission Date: 20120928
  Serious: Yes (Hospitalization)
  Sender: FDA-Public Use
  Company Number: PL-BAYER-2012-083599

PATIENT
  Age: 73 Year
  Sex: Female

DRUGS (1)
  1. ULTRAVIST 150 [Suspect]
     Indication: ANGIOGRAM
     Dosage: UNK UNK, ONCE
     Route: 042
     Dates: start: 20120730, end: 20120730

REACTIONS (3)
  - VOMITING [None]
  - HYPOKALAEMIA [None]
  - BLOOD PRESSURE INCREASED [None]
